FAERS Safety Report 5387428-0 (Version None)
Quarter: 2007Q3

REPORT INFORMATION
  Report Type: 
  Country: None (occurrence: None)
  Receive Date: 20070716
  Receipt Date: 20070710
  Transmission Date: 20080115
  Serious: Yes (Other)
  Sender: FDA-Public Use
  Company Number: JP-AVENTIS-200711848JP

PATIENT
  Age: 82 Year
  Sex: Female

DRUGS (3)
  1. AMARYL [Suspect]
     Route: 048
     Dates: start: 20070629, end: 20070710
  2. LASIX [Concomitant]
     Dates: end: 20070704
  3. LASIX [Concomitant]
     Dates: start: 20070704

REACTIONS (2)
  - CARDIAC FAILURE [None]
  - PLEURAL EFFUSION [None]
